FAERS Safety Report 4711982-2 (Version None)
Quarter: 2005Q3

REPORT INFORMATION
  Report Type: 
  Country: None (occurrence: None)
  Receive Date: 20050708
  Receipt Date: 20050624
  Transmission Date: 20060218
  Serious: Yes (Other)
  Sender: FDA-Public Use
  Company Number: 2005-DE-02425GD

PATIENT
  Sex: Male

DRUGS (17)
  1. CHLORTHALIDONE [Suspect]
     Indication: HYPERTENSION
  2. FUROSEMIDE (FUROSEMIDE) [Suspect]
  3. MIRTAZAPINE [Suspect]
  4. ATORVASTATIN CALCIUM [Suspect]
     Indication: METABOLIC SYNDROME
  5. NIFEDIPINE [Suspect]
  6. SIMVASTATIN [Concomitant]
  7. METFORMIN [Concomitant]
  8. IRBESARTAN [Concomitant]
  9. ATENOLOL [Concomitant]
  10. CLOMIPRAMINE HCL [Concomitant]
  11. VENLAFAXINE HCL [Concomitant]
  12. GLIQUIDONE [Concomitant]
  13. AMLODIPINE [Concomitant]
  14. LOSARTAN [Concomitant]
  15. BISOPROLOL [Concomitant]
  16. HYDROCHLOROTHIAZIDE [Concomitant]
  17. ALPRAZOLAM [Concomitant]

REACTIONS (8)
  - BLOOD TRIGLYCERIDES INCREASED [None]
  - DIABETES MELLITUS [None]
  - DRUG INTERACTION [None]
  - GLYCOSYLATED HAEMOGLOBIN INCREASED [None]
  - HEADACHE [None]
  - HYPERTENSION [None]
  - LIPID METABOLISM DISORDER [None]
  - METABOLIC SYNDROME [None]
